FAERS Safety Report 8606840 (Version 2)
Quarter: 2014Q1

REPORT INFORMATION
  Report Type: Spontaneous
  Country: US (occurrence: US)
  Receive Date: 20120611
  Receipt Date: 20140114
  Transmission Date: 20141002
  Serious: Yes (Other)
  Sender: FDA-Public Use
  Company Number: US-ASTRAZENECA-2012SE34424

PATIENT
  Age: 44 Year
  Sex: Female
  Weight: 122.5 kg

DRUGS (21)
  1. NEXIUM [Suspect]
     Route: 048
  2. NEXIUM [Suspect]
     Dosage: TWICE A DAY
     Route: 048
  3. PRILOSEC [Suspect]
     Dosage: TWICE A DAY
     Route: 048
  4. PRILOSEC [Suspect]
     Route: 048
     Dates: start: 19890414
  5. PRILOSEC OTC [Suspect]
     Dosage: TWICE A DAY
     Route: 048
  6. PEPCID [Concomitant]
  7. ZANTAC [Concomitant]
  8. MYLANTA [Concomitant]
     Indication: GASTRIC DISORDER
  9. PREVACID [Concomitant]
     Dates: start: 20070208
  10. PROTONIX [Concomitant]
     Dosage: TWICE A DAY
  11. METHOCARBAMOL [Concomitant]
     Dates: start: 20080104
  12. PROMETHAZINE [Concomitant]
     Dates: start: 20080110
  13. SULFAMETHOXAZOLE [Concomitant]
     Dates: start: 20080123
  14. PREDNISONE [Concomitant]
     Dates: start: 19980424
  15. VITAMIN D [Concomitant]
     Dosage: 50K
     Dates: start: 20090409
  16. MORPHINE SULF [Concomitant]
     Dates: start: 20090403
  17. FOLIC ACID [Concomitant]
     Dates: start: 20090902
  18. HYDROCODONE [Concomitant]
     Dates: start: 20080307
  19. NORCO [Concomitant]
     Dosage: 10/325 MG
     Dates: start: 19990715
  20. CYCLOBENZAPRINE [Concomitant]
     Dates: start: 19981104
  21. LOTREL [Concomitant]
     Dosage: 5/10 MG
     Dates: start: 20000804

REACTIONS (14)
  - Cerebrovascular accident [Unknown]
  - Osteoporosis [Unknown]
  - Systemic lupus erythematosus [Unknown]
  - Multiple fractures [Unknown]
  - Pneumonia [Unknown]
  - Bone disorder [Unknown]
  - Chest pain [Unknown]
  - Diabetes mellitus [Unknown]
  - Rheumatoid arthritis [Unknown]
  - Sarcoidosis [Unknown]
  - Vitamin D deficiency [Unknown]
  - Limb discomfort [Unknown]
  - Gastrooesophageal reflux disease [Unknown]
  - Depression [Unknown]
